FAERS Safety Report 5412440-2 (Version None)
Quarter: 2007Q3

REPORT INFORMATION
  Report Type: 
  Country: None (occurrence: None)
  Receive Date: 20070713
  Receipt Date: 20070424
  Transmission Date: 20080115
  Serious: Yes (Hospitalization)
  Sender: FDA-Public Use
  Company Number: US-JNJFOC-20061000245

PATIENT
  Age: 48 Year
  Sex: Female

DRUGS (6)
  1. ORTHO EVRA [Suspect]
     Indication: CONTRACEPTION
     Dosage: TRANSDERMAL
     Route: 062
     Dates: start: 20051101
  2. LISINOPRIL [Concomitant]
  3. LEXAPRO [Concomitant]
  4. ZANTAC 150 [Concomitant]
  5. NASONEX [Concomitant]
  6. ACYCLOVIR CREAM (ACICLOVIR) [Concomitant]

REACTIONS (7)
  - ABDOMINAL PAIN [None]
  - BLOOD URINE PRESENT [None]
  - CELLULITIS [None]
  - FATIGUE [None]
  - PAIN IN EXTREMITY [None]
  - THROMBOSIS [None]
  - VENOUS STASIS [None]
